FAERS Safety Report 4633148-7 (Version None)
Quarter: 2005Q2

REPORT INFORMATION
  Report Type: 
  Country: None (occurrence: None)
  Receive Date: 20050412
  Receipt Date: 20050330
  Transmission Date: 20051028
  Serious: Yes (Other)
  Sender: FDA-Public Use
  Company Number: CH-GLAXOSMITHKLINE-B0377337A

PATIENT
  Age: 2 Year
  Sex: Male

DRUGS (1)
  1. ZINNAT [Suspect]
     Indication: PNEUMONIA
     Dosage: 62.5MG THREE TIMES PER DAY
     Route: 048

REACTIONS (5)
  - AGGRESSION [None]
  - ANGER [None]
  - HALLUCINATION [None]
  - HEAD BANGING [None]
  - PERSONALITY CHANGE [None]
